FAERS Safety Report 12069031 (Version 1)
Quarter: 2016Q1

REPORT INFORMATION
  Report Type: Spontaneous
  Country: PE (occurrence: PE)
  Receive Date: 20160211
  Receipt Date: 20160211
  Transmission Date: 20160526
  Serious: Yes (Hospitalization)
  Sender: FDA-Public Use
  Company Number: PE-009507513-1602PER005535

PATIENT
  Age: 72 Year
  Sex: Female

DRUGS (2)
  1. VYTORIN [Suspect]
     Active Substance: EZETIMIBE\SIMVASTATIN
     Dosage: HALF TABLET, QD
     Route: 048
     Dates: start: 2015
  2. VYTORIN [Suspect]
     Active Substance: EZETIMIBE\SIMVASTATIN
     Dosage: UNK
     Route: 048
     Dates: start: 2011, end: 2015

REACTIONS (3)
  - Arrhythmia supraventricular [Not Recovered/Not Resolved]
  - Myalgia [Not Recovered/Not Resolved]
  - Wrong technique in product usage process [Unknown]

NARRATIVE: CASE EVENT DATE: 2015
